FAERS Safety Report 26005816 (Version 1)
Quarter: 2025Q4

REPORT INFORMATION
  Report Type: Spontaneous
  Country: CA (occurrence: CA)
  Receive Date: 20251106
  Receipt Date: 20251106
  Transmission Date: 20260118
  Serious: Yes (Disabling)
  Sender: TEVA
  Company Number: CA-TEVA-VS-3388120

PATIENT
  Age: 68 Year
  Sex: Male
  Weight: 65.771 kg

DRUGS (1)
  1. VALSARTAN [Suspect]
     Active Substance: VALSARTAN
     Indication: Hypertension
     Dosage: DOSE FORM: NOT SPECIFIED
     Route: 048

REACTIONS (2)
  - Headache [Recovered/Resolved]
  - Dysgeusia [Recovered/Resolved]
